FAERS Safety Report 4864498-7 (Version None)
Quarter: 2005Q4

REPORT INFORMATION
  Report Type: 
  Country: None (occurrence: None)
  Receive Date: 20051222
  Receipt Date: 20051214
  Transmission Date: 20060501
  Serious: Yes (Other)
  Sender: FDA-Public Use
  Company Number: GB-BRISTOL-MYERS SQUIBB COMPANY-13214747

PATIENT
  Age: 69 Year
  Sex: Female
  Weight: 71 kg

DRUGS (5)
  1. IRBESARTAN [Suspect]
     Indication: HYPERTENSION
     Route: 048
     Dates: start: 20050906, end: 20051202
  2. ASPIRIN [Concomitant]
     Dates: start: 20030408
  3. PARACETAMOL [Concomitant]
     Dosage: DOSAGE: TAKE ONE OR TWO FOUR TIMES A DAY AS REQUESTED.
     Dates: start: 20041109
  4. SIMVASTATIN [Concomitant]
     Dates: start: 20050906
  5. METRONIDAZOLE [Concomitant]
     Dates: end: 20051115

REACTIONS (1)
  - VAGINAL DISORDER [None]
